FAERS Safety Report 4729862-5 (Version None)
Quarter: 2005Q3

REPORT INFORMATION
  Report Type: 
  Country: None (occurrence: None)
  Receive Date: 20050801
  Receipt Date: 20050309
  Transmission Date: 20060218
  Serious: Yes (Hospitalization, Disabling, Other)
  Sender: FDA-Public Use
  Company Number: US-MERCK-0503USA01974

PATIENT
  Age: 43 Year
  Sex: Female

DRUGS (4)
  1. VIOXX [Suspect]
     Indication: ARTHRITIS
     Route: 048
     Dates: start: 19991101, end: 20041001
  2. VIOXX [Suspect]
     Route: 048
     Dates: start: 19991101, end: 20041001
  3. VIOXX [Suspect]
     Route: 048
     Dates: start: 19991101, end: 20041001
  4. VIOXX [Suspect]
     Route: 048
     Dates: start: 19991101, end: 20041001

REACTIONS (25)
  - ADVERSE EVENT [None]
  - ASTHMA [None]
  - BLOOD GLUCOSE INCREASED [None]
  - CARDIAC DISORDER [None]
  - CARDIAC FAILURE CONGESTIVE [None]
  - CARDIAC MURMUR [None]
  - CARDIOMEGALY [None]
  - CHEST PAIN [None]
  - CONVULSION [None]
  - DEPRESSION [None]
  - DIABETES MELLITUS [None]
  - DRUG HYPERSENSITIVITY [None]
  - DYSPNOEA [None]
  - GASTRIC DISORDER [None]
  - HEART RATE IRREGULAR [None]
  - HYPERTENSION [None]
  - MYOCARDIAL INFARCTION [None]
  - OBESITY [None]
  - OBSESSIVE-COMPULSIVE DISORDER [None]
  - OEDEMA PERIPHERAL [None]
  - POLYTRAUMATISM [None]
  - RHEUMATOID ARTHRITIS [None]
  - STOMACH DISCOMFORT [None]
  - STRESS [None]
  - THROMBOSIS [None]
